FAERS Safety Report 6728152-9 (Version None)
Quarter: 2010Q2

REPORT INFORMATION
  Report Type: 
  Country: None (occurrence: None)
  Receive Date: 20100517
  Receipt Date: 20100510
  Transmission Date: 20101027
  Serious: Yes (Death, Hospitalization)
  Sender: FDA-Public Use
  Company Number: A0850939A

PATIENT
  Sex: Female

DRUGS (1)
  1. TYKERB [Suspect]
     Indication: DRUG USE FOR UNKNOWN INDICATION
     Dosage: 250MG PER DAY
     Route: 065
     Dates: start: 20100206, end: 20100302

REACTIONS (4)
  - DEATH [None]
  - NAUSEA [None]
  - NEOPLASM [None]
  - VOMITING [None]
